FAERS Safety Report 4790220-9 (Version None)
Quarter: 2005Q4

REPORT INFORMATION
  Report Type: 
  Country: None (occurrence: None)
  Receive Date: 20051006
  Receipt Date: 20050929
  Transmission Date: 20060501
  Serious: Yes (Other)
  Sender: FDA-Public Use
  Company Number: US-ROCHE-419661

PATIENT
  Age: 57 Year
  Sex: Male
  Weight: 74.8 kg

DRUGS (5)
  1. PEGASYS [Suspect]
     Indication: HEPATITIS C
     Route: 058
     Dates: start: 20050913, end: 20050920
  2. COPEGUS [Suspect]
     Indication: HEPATITIS C
     Route: 048
     Dates: start: 20050913, end: 20050927
  3. HYDROCODONE [Concomitant]
     Dosage: TAKEN DAILY.
     Route: 048
  4. IBUPROFEN [Concomitant]
     Route: 048
  5. MULTIVITAMIN NOS [Concomitant]
     Route: 048

REACTIONS (11)
  - AMNESIA [None]
  - CHILLS [None]
  - DEPRESSION [None]
  - FAECES DISCOLOURED [None]
  - FATIGUE [None]
  - HAEMOGLOBIN DECREASED [None]
  - HYPOTENSION [None]
  - LOSS OF CONSCIOUSNESS [None]
  - MOOD SWINGS [None]
  - PLATELET COUNT DECREASED [None]
  - PYREXIA [None]
